FAERS Safety Report 16349162 (Version 2)
Quarter: 2019Q3

REPORT INFORMATION
  Report Type: Spontaneous
  Country: MX (occurrence: MX)
  Receive Date: 20190523
  Receipt Date: 20190731
  Transmission Date: 20191004
  Serious: Yes (Other)
  Sender: FDA-Public Use
  Company Number: MX-ANIPHARMA-2019-MX-000014

PATIENT
  Age: 59 Year
  Sex: Female
  Weight: 62 kg

DRUGS (4)
  1. NOLVADEX [Suspect]
     Active Substance: TAMOXIFEN CITRATE
     Indication: BREAST CANCER
     Dosage: 20 MG DAILY
     Route: 048
     Dates: start: 2016
  2. ARIMIDEX [Suspect]
     Active Substance: ANASTROZOLE
     Indication: BREAST CANCER
     Dosage: 1 MG DAILY
     Route: 048
     Dates: start: 2011, end: 2016
  3. NEXIUM-MUPS [Suspect]
     Active Substance: ESOMEPRAZOLE
     Indication: DYSPEPSIA
     Dosage: 40 MG DAILY / 80 MG PRN
     Route: 048
     Dates: start: 2009
  4. PINAVERIUM BROMIDE [Concomitant]
     Active Substance: PINAVERIUM BROMIDE
     Dosage: 100 MG BID
     Route: 048
     Dates: start: 2009

REACTIONS (3)
  - Breast cancer recurrent [Unknown]
  - Drug ineffective [Unknown]
  - Breast cancer female [Unknown]

NARRATIVE: CASE EVENT DATE: 2016
